FAERS Safety Report 4545980-9 (Version None)
Quarter: 2005Q1

REPORT INFORMATION
  Report Type: 
  Country: None (occurrence: None)
  Receive Date: 20050105
  Receipt Date: 20050105
  Transmission Date: 20050727
  Serious: Yes (Hospitalization)
  Sender: FDA-Public Use
  Company Number: None

PATIENT
  Age: 48 Year
  Sex: Female
  Weight: 69.4003 kg

DRUGS (1)
  1. MITOXANTRONE [Suspect]
     Indication: MULTIPLE SCLEROSIS
     Dosage: 17 MG   Q 3 MO  INTRAVENOU
     Route: 042
     Dates: start: 20030715, end: 20041007

REACTIONS (2)
  - CARDIAC FAILURE CONGESTIVE [None]
  - CONGESTIVE CARDIOMYOPATHY [None]
